FAERS Safety Report 9704492 (Version 1)
Quarter: 2013Q4

REPORT INFORMATION
  Report Type: Spontaneous
  Country: US (occurrence: US)
  Receive Date: 20131122
  Receipt Date: 20131122
  Transmission Date: 20140711
  Serious: Yes (Other)
  Sender: FDA-Public Use
  Company Number: US-PFIZER INC-2013333141

PATIENT
  Age: 48 Year
  Sex: Male
  Weight: 69.39 kg

DRUGS (4)
  1. XANAX [Suspect]
     Dosage: UNK
     Dates: end: 2013
  2. XANAX [Suspect]
     Dosage: 0.5 MG, DAILY
     Dates: start: 20131119
  3. ZOLOFT [Suspect]
     Indication: MUSCLE RELAXANT THERAPY
     Dosage: 100 MG, DAILY
     Dates: start: 20131119
  4. MORPHINE [Concomitant]
     Indication: LUNG NEOPLASM MALIGNANT
     Dosage: 60 MG, 3X/DAY

REACTIONS (4)
  - Hallucination [Unknown]
  - Sleep talking [Unknown]
  - Abnormal dreams [Unknown]
  - Intentional drug misuse [Unknown]
